FAERS Safety Report 10216850 (Version 1)
Quarter: 2014Q2

REPORT INFORMATION
  Report Type: Spontaneous
  Country: GB (occurrence: GB)
  Receive Date: 20140604
  Receipt Date: 20140604
  Transmission Date: 20141212
  Serious: Yes (Life-Threatening)
  Sender: FDA-Public Use
  Company Number: GB-TEVA-484387ISR

PATIENT
  Age: 64 Year
  Sex: Male
  Weight: 60 kg

DRUGS (4)
  1. METHOTREXATE [Suspect]
     Dosage: STOPPED TEMPORARILY AND RECOMMENCED AT 5 MG, THEN WITHDRAWN
  2. RITUXIMAB [Suspect]
     Indication: RHEUMATOID ARTHRITIS
     Route: 042
     Dates: start: 20120830
  3. WARFARIN [Concomitant]
  4. FOLIC ACID [Concomitant]

REACTIONS (1)
  - Neutropenia [Recovered/Resolved]
